FAERS Safety Report 7080730-6 (Version None)
Quarter: 2010Q4

REPORT INFORMATION
  Report Type: 
  Country: None (occurrence: None)
  Receive Date: 20101103
  Receipt Date: 20101025
  Transmission Date: 20110411
  Serious: Yes (Hospitalization)
  Sender: FDA-Public Use
  Company Number: DE-SANOFI-AVENTIS-2010SA064866

PATIENT
  Age: 77 Year
  Sex: Male

DRUGS (3)
  1. TAXOTERE [Suspect]
     Route: 041
     Dates: start: 20100401, end: 20100401
  2. TAXOTERE [Suspect]
     Route: 041
     Dates: start: 20100801, end: 20100801
  3. ZOMETA [Concomitant]
     Route: 042
     Dates: start: 20091001, end: 20100901

REACTIONS (1)
  - CEREBRAL HAEMORRHAGE [None]
